FAERS Safety Report 6310111-1 (Version None)
Quarter: 2009Q3

REPORT INFORMATION
  Report Type: 
  Country: None (occurrence: None)
  Receive Date: 20090811
  Receipt Date: 20090730
  Transmission Date: 20100115
  Serious: No
  Sender: FDA-Public Use
  Company Number: SPI200900245

PATIENT
  Age: 49 Year
  Sex: Female
  Weight: 59 kg

DRUGS (4)
  1. AMITIZA [Suspect]
     Indication: IRRITABLE BOWEL SYNDROME
     Dosage: 24 MCG, BID, ORAL 8 MCG, 2 CAPSULES, BID, ORAL
     Route: 048
     Dates: start: 20070101, end: 20090101
  2. AMITIZA [Suspect]
     Indication: IRRITABLE BOWEL SYNDROME
     Dosage: 24 MCG, BID, ORAL 8 MCG, 2 CAPSULES, BID, ORAL
     Route: 048
     Dates: start: 20090101
  3. PROTONIX [Concomitant]
  4. SINGULAIR /01362601/ (MONTEKULAST) [Concomitant]
     Indication: CONSTIPATION

REACTIONS (4)
  - CHEST DISCOMFORT [None]
  - HEADACHE [None]
  - NAUSEA [None]
  - OEDEMA PERIPHERAL [None]
